FAERS Safety Report 18899937 (Version 1)
Quarter: 2021Q1

REPORT INFORMATION
  Report Type: Spontaneous
  Country: JP (occurrence: JP)
  Receive Date: 20210216
  Receipt Date: 20210216
  Transmission Date: 20210420
  Serious: Yes (Other)
  Sender: FDA-Public Use
  Company Number: JP-EXELIXIS-CABO-20036385

PATIENT
  Age: 79 Year
  Sex: Male

DRUGS (3)
  1. TACROLIMUS MONOHYDRATE [Concomitant]
     Active Substance: TACROLIMUS
     Dosage: UNK
     Route: 065
  2. BETANIS [Concomitant]
     Active Substance: MIRABEGRON
     Dosage: UNK
     Route: 065
  3. CABOMETYX [Suspect]
     Active Substance: CABOZANTINIB S-MALATE
     Indication: RENAL CELL CARCINOMA
     Dosage: 20 MG
     Route: 048
     Dates: start: 20201013, end: 20210202

REACTIONS (7)
  - Insomnia [Unknown]
  - Palmar-plantar erythrodysaesthesia syndrome [Unknown]
  - Loss of consciousness [Recovered/Resolved]
  - Traumatic haemorrhage [Unknown]
  - Hypertension [Unknown]
  - Fall [Unknown]
  - Skin discolouration [Not Recovered/Not Resolved]

NARRATIVE: CASE EVENT DATE: 20201211
